FAERS Safety Report 9222535 (Version 2)
Quarter: 2013Q2

REPORT INFORMATION
  Report Type: Spontaneous
  Country: SG (occurrence: SG)
  Receive Date: 20130410
  Receipt Date: 20130520
  Transmission Date: 20140414
  Serious: Yes (Other)
  Sender: FDA-Public Use
  Company Number: SG-ROCHE-1209694

PATIENT
  Age: 62 Year
  Sex: Male

DRUGS (2)
  1. ACTILYSE [Suspect]
     Indication: CEREBRAL ARTERY OCCLUSION
     Dosage: 10% AS BOLUS, 90% AS INFUSION OVER 60 MIN
     Route: 042
  2. ACTILYSE [Suspect]
     Route: 040

REACTIONS (3)
  - Cerebral artery occlusion [Recovered/Resolved]
  - Neurological decompensation [Recovered/Resolved]
  - Embolism [Recovered/Resolved]
